FAERS Safety Report 7788469-6 (Version None)
Quarter: 2011Q3

REPORT INFORMATION
  Report Type: 
  Country: None (occurrence: None)
  Receive Date: 20110928
  Receipt Date: 20110921
  Transmission Date: 20111222
  Serious: Yes (Hospitalization, Other)
  Sender: FDA-Public Use
  Company Number: 2011SP045075

PATIENT
  Age: 62 Year
  Sex: Female

DRUGS (3)
  1. PEG-INTRON [Suspect]
     Indication: HEPATITIS C
     Dates: start: 20110624
  2. RIBAVIRIN [Suspect]
     Indication: HEPATITIS C
     Dates: start: 20110624
  3. VICTRELIS [Suspect]
     Indication: HEPATITIS C
     Dates: start: 20110831

REACTIONS (7)
  - VOMITING [None]
  - DIARRHOEA [None]
  - FATIGUE [None]
  - SOMNOLENCE [None]
  - NAUSEA [None]
  - WHITE BLOOD CELL COUNT DECREASED [None]
  - HYPOTENSION [None]
